FAERS Safety Report 6590543-7 (Version None)
Quarter: 2010Q1

REPORT INFORMATION
  Report Type: 
  Country: None (occurrence: None)
  Receive Date: 20100219
  Receipt Date: 20100208
  Transmission Date: 20100710
  Serious: Yes (Other)
  Sender: FDA-Public Use
  Company Number: FR-PFIZER INC-2010016126

PATIENT
  Age: 59 Year
  Sex: Female

DRUGS (4)
  1. VFEND [Suspect]
     Dosage: UNK
     Route: 048
     Dates: start: 20080101, end: 20080605
  2. POSACONAZOLE [Suspect]
     Indication: ASPERGILLOSIS
     Dosage: 40 MG/ML
     Route: 048
     Dates: start: 20090911, end: 20091223
  3. CANCIDAS [Concomitant]
     Indication: ASPERGILLOSIS
     Dosage: UNK
     Dates: start: 20080801, end: 20090901
  4. SPORANOX [Concomitant]
     Indication: ASPERGILLOSIS
     Dosage: UNK
     Dates: start: 20080801, end: 20080901

REACTIONS (1)
  - SQUAMOUS CELL CARCINOMA [None]
